FAERS Safety Report 5476641-X (Version None)
Quarter: 2007Q4

REPORT INFORMATION
  Report Type: 
  Country: None (occurrence: None)
  Receive Date: 20071004
  Receipt Date: 20070927
  Transmission Date: 20080405
  Serious: Yes (Death, Hospitalization)
  Sender: FDA-Public Use
  Company Number: US-JNJFOC-20070802131

PATIENT
  Age: 33 Year
  Sex: Female
  Weight: 60.8 kg

DRUGS (3)
  1. TYLENOL (CAPLET) [Suspect]
     Indication: INTENTIONAL OVERDOSE
     Dosage: 7 BOTTLES
  2. BENADRYL [Suspect]
     Indication: INTENTIONAL OVERDOSE
     Dosage: 2 BOTTLES
  3. ANTIPSYCHOTIC MEDICATION [Concomitant]
     Indication: BIPOLAR DISORDER

REACTIONS (2)
  - DRUG ADMINISTRATION ERROR [None]
  - MULTIPLE DRUG OVERDOSE INTENTIONAL [None]
